FAERS Safety Report 4411931-0 (Version None)
Quarter: 2004Q3

REPORT INFORMATION
  Report Type: 
  Country: None (occurrence: None)
  Receive Date: 20040730
  Receipt Date: 20040423
  Transmission Date: 20050211
  Serious: No
  Sender: FDA-Public Use
  Company Number: US-GLAXOSMITHKLINE-A0508357A

PATIENT
  Age: 67 Year
  Sex: Female

DRUGS (19)
  1. ZANTAC [Suspect]
     Dosage: 150MG TWICE PER DAY
     Route: 048
     Dates: start: 20020401
  2. ACCOLATE [Concomitant]
  3. LASIX [Concomitant]
  4. PAXIL [Concomitant]
  5. POTASSIUM CHLORIDE [Concomitant]
  6. SYNTHROID [Concomitant]
  7. ROBITUSSIN COUGH SYRUP [Concomitant]
  8. GLYBURIDE [Concomitant]
  9. PROTONIX [Concomitant]
  10. MAGNESIUM [Concomitant]
  11. SENOKOT [Concomitant]
  12. DOXEPIN HCL [Concomitant]
  13. ROXICET [Concomitant]
  14. ALPRAZOLAM [Concomitant]
  15. NORTRIPTYLINE HCL [Concomitant]
  16. ALBUTEROL [Concomitant]
  17. ADVAIR DISKUS 100/50 [Concomitant]
  18. SINEMET [Concomitant]
  19. DUONEB [Concomitant]

REACTIONS (1)
  - DRUG INEFFECTIVE [None]
